FAERS Safety Report 19078600 (Version 2)
Quarter: 2021Q2

REPORT INFORMATION
  Report Type: Report from Study
  Country: BR (occurrence: BR)
  Receive Date: 20210331
  Receipt Date: 20210430
  Transmission Date: 20210717
  Serious: Yes (Life-Threatening, Hospitalization, Other)
  Sender: FDA-Public Use
  Company Number: NVSC2021BR071312

PATIENT
  Age: 69 Year
  Sex: Male

DRUGS (3)
  1. DIOVAN AMLO FIX [Suspect]
     Active Substance: AMLODIPINE\VALSARTAN
     Indication: HYPERTENSION
     Dosage: 320/5 MG (STARTED MORE THAN 10 YEARS AGO AND STOPPED 5 OR 6 MONTHS AGO)
     Route: 065
  2. ROSUVASTATIN. [Suspect]
     Active Substance: ROSUVASTATIN
     Indication: BLOOD CHOLESTEROL INCREASED
     Dosage: UNK
     Route: 065
  3. DIOVAN [Suspect]
     Active Substance: VALSARTAN
     Indication: PRODUCT USED FOR UNKNOWN INDICATION
     Dosage: 160/12.5
     Route: 065

REACTIONS (30)
  - Spinal cord compression [Unknown]
  - Infection [Unknown]
  - Immunodeficiency [Unknown]
  - Gait disturbance [Unknown]
  - Herpes zoster [Unknown]
  - Blood pressure increased [Unknown]
  - Bacterial sepsis [Unknown]
  - Neuropathy peripheral [Unknown]
  - C-reactive protein increased [Unknown]
  - Blood creatinine increased [Unknown]
  - Diabetes mellitus [Unknown]
  - Iron deficiency [Unknown]
  - Malaise [Unknown]
  - Spinal column injury [Unknown]
  - Movement disorder [Unknown]
  - Blood cholesterol increased [Unknown]
  - Full blood count decreased [Unknown]
  - Illness [Unknown]
  - Inappropriate schedule of product administration [Unknown]
  - Urinary tract infection [Unknown]
  - Pneumonia [Unknown]
  - Near death experience [Unknown]
  - Thrombosis [Unknown]
  - Anaemia [Unknown]
  - Pain [Unknown]
  - Spinal pain [Unknown]
  - Blood pressure decreased [Unknown]
  - Pulmonary embolism [Unknown]
  - Central nervous system infection [Unknown]
  - Incorrect dose administered [Unknown]

NARRATIVE: CASE EVENT DATE: 2019
